FAERS Safety Report 4607350-4 (Version None)
Quarter: 2005Q1

REPORT INFORMATION
  Report Type: 
  Country: None (occurrence: None)
  Receive Date: 20050310
  Receipt Date: 20050228
  Transmission Date: 20050727
  Serious: Yes (Life-Threatening)
  Sender: FDA-Public Use
  Company Number: AWBNIASPAND2004-48

PATIENT
  Age: 59 Year
  Sex: Female

DRUGS (2)
  1. NIASPAN [Suspect]
     Indication: HYPERLIPIDAEMIA
     Dosage: 375 MG PO
     Route: 048
     Dates: start: 20041116, end: 20041116
  2. VERAPAMIL [Concomitant]

REACTIONS (1)
  - HYPERSENSITIVITY [None]
